FAERS Safety Report 6689007-1 (Version None)
Quarter: 2010Q2

REPORT INFORMATION
  Report Type: 
  Country: None (occurrence: None)
  Receive Date: 20100420
  Receipt Date: 20100409
  Transmission Date: 20101027
  Serious: Yes (Hospitalization, Other)
  Sender: FDA-Public Use
  Company Number: PHEH2009US11309

PATIENT
  Sex: Female

DRUGS (1)
  1. RECLAST [Suspect]
     Dosage: UNK, ONCE/SINGLE
     Dates: start: 20090908

REACTIONS (8)
  - ABASIA [None]
  - CONSTIPATION [None]
  - FINGER DEFORMITY [None]
  - GAIT DISTURBANCE [None]
  - HEADACHE [None]
  - MUSCULOSKELETAL DISORDER [None]
  - NONSPECIFIC REACTION [None]
  - VISION BLURRED [None]
